FAERS Safety Report 10740196 (Version 1)
Quarter: 2015Q1

REPORT INFORMATION
  Report Type: Spontaneous
  Country: US (occurrence: US)
  Receive Date: 20150127
  Receipt Date: 20150127
  Transmission Date: 20150721
  Serious: No
  Sender: FDA-Public Use
  Company Number: US-009507513-1501USA004918

PATIENT
  Age: 35 Year
  Sex: Female

DRUGS (1)
  1. NEXPLANON [Suspect]
     Active Substance: ETONOGESTREL
     Indication: CONTRACEPTION
     Dosage: UNK
     Route: 059
     Dates: start: 20140502

REACTIONS (14)
  - Breast tenderness [Unknown]
  - Mood swings [Unknown]
  - Depression [Unknown]
  - Depressed mood [Unknown]
  - Dysmenorrhoea [Unknown]
  - Abdominal pain lower [Unknown]
  - Alopecia [Unknown]
  - Asthenia [Unknown]
  - Device difficult to use [Not Recovered/Not Resolved]
  - Acne [Unknown]
  - Weight increased [Unknown]
  - Device breakage [Not Recovered/Not Resolved]
  - Fatigue [Unknown]
  - Back pain [Unknown]

NARRATIVE: CASE EVENT DATE: 2014
